FAERS Safety Report 18424352 (Version 7)
Quarter: 2021Q1

REPORT INFORMATION
  Report Type: Report from Study
  Country: TR (occurrence: TR)
  Receive Date: 20201026
  Receipt Date: 20210315
  Transmission Date: 20210419
  Serious: Yes (Hospitalization, Other)
  Sender: FDA-Public Use
  Company Number: TR-ROCHE-2677440

PATIENT
  Age: 36 Year
  Sex: Male
  Weight: 104.5 kg

DRUGS (23)
  1. PREDNOL?L [Concomitant]
     Route: 048
     Dates: start: 20210207, end: 20210209
  2. PARACEROL [Concomitant]
     Indication: PNEUMONIA
     Route: 042
     Dates: start: 20201211, end: 20201217
  3. AVIL [Concomitant]
     Active Substance: PHENIRAMINE
     Indication: RASH MACULO-PAPULAR
     Dates: start: 20201217
  4. PREDNOL?L [Concomitant]
     Route: 048
     Dates: start: 20210203, end: 20210207
  5. PREDNOL?L [Concomitant]
     Route: 048
     Dates: start: 20210211, end: 20210215
  6. PREDNOL?L [Concomitant]
     Route: 048
     Dates: start: 20210226, end: 20210307
  7. ZYGOSIS [Concomitant]
     Indication: PNEUMONIA
     Route: 042
     Dates: start: 20201211, end: 20201217
  8. PREDNOL?L [Concomitant]
     Route: 048
     Dates: start: 20210130, end: 20210203
  9. PREDNOL?L [Concomitant]
     Route: 048
     Dates: start: 20210209, end: 20210210
  10. METHYLPREDNISOLONE. [Concomitant]
     Active Substance: METHYLPREDNISOLONE
     Route: 048
     Dates: start: 20201224, end: 20201229
  11. AVELOX [Concomitant]
     Active Substance: MOXIFLOXACIN HYDROCHLORIDE
     Indication: PNEUMONIA
     Route: 042
     Dates: start: 20201212, end: 20201217
  12. PREDNOL?L [Concomitant]
     Route: 048
     Dates: start: 20210216, end: 20210220
  13. PHENIRAMINE [Concomitant]
     Active Substance: PHENIRAMINE
     Route: 042
     Dates: start: 20201211, end: 20201217
  14. PANTOPRAZOLE [Concomitant]
     Active Substance: PANTOPRAZOLE
     Indication: PROPHYLAXIS
     Dates: start: 20171222
  15. ZALDIAR [Concomitant]
     Active Substance: ACETAMINOPHEN\TRAMADOL HYDROCHLORIDE
     Dates: start: 20200820
  16. AERIUS [Concomitant]
     Indication: RASH MACULO-PAPULAR
     Dates: start: 20200724, end: 20201023
  17. PREDNOL?L [Concomitant]
     Indication: PULMONARY EMBOLISM
     Route: 048
     Dates: start: 20210126, end: 20210130
  18. PREDNOL?L [Concomitant]
     Route: 048
     Dates: start: 20210221, end: 20210225
  19. ZYRTEC (TURKEY) [Concomitant]
     Indication: RASH MACULO-PAPULAR
     Dates: start: 20201023, end: 20201210
  20. ATEZOLIZUMAB. [Suspect]
     Active Substance: ATEZOLIZUMAB
     Indication: NON-SMALL CELL LUNG CANCER
     Dosage: DATE OF MOST RECENT DOSE OF ATEZOLIZUMAB PRIOR TO AE ONSET: 20/AUG/2020?ON 26/NOV/2020, AT 12:10 REC
     Route: 041
     Dates: start: 20170718
  21. CLEXANE [Concomitant]
     Active Substance: ENOXAPARIN SODIUM
     Indication: PULMONARY EMBOLISM
     Dosage: 10 MG/ML
     Route: 042
     Dates: start: 20200611
  22. NOVOSEF [Concomitant]
     Indication: PNEUMONIA
     Dates: start: 20201212, end: 20201214
  23. MOKSILOX [Concomitant]
     Route: 042
     Dates: start: 20201211, end: 20201217

REACTIONS (3)
  - Pneumonia [Recovered/Resolved]
  - Langerhans^ cell histiocytosis [Recovering/Resolving]
  - Dyspnoea [Recovered/Resolved]

NARRATIVE: CASE EVENT DATE: 20200911
